FAERS Safety Report 17636031 (Version 1)
Quarter: 2020Q2

REPORT INFORMATION
  Report Type: Spontaneous
  Country: US (occurrence: US)
  Receive Date: 20200403
  Receipt Date: 20200403
  Transmission Date: 20200713
  Serious: No
  Sender: FDA-Public Use
  Company Number: None

PATIENT
  Age: 54 Year
  Sex: Female

DRUGS (1)
  1. OCTREOTIDE INJ 0.2MG/ML [Suspect]
     Active Substance: OCTREOTIDE
     Dates: end: 202002

REACTIONS (3)
  - Dyspnoea [None]
  - Hypoaesthesia [None]
  - Chest pain [None]

NARRATIVE: CASE EVENT DATE: 20200403
